FAERS Safety Report 26111858 (Version 1)
Quarter: 2025Q4

REPORT INFORMATION
  Report Type: Spontaneous
  Country: US (occurrence: None)
  Receive Date: 20251201
  Receipt Date: 20251201
  Transmission Date: 20260117
  Serious: No
  Sender: FDA-CTU
  Company Number: None

PATIENT
  Age: 33 Year
  Sex: Female

DRUGS (1)
  1. ZURZUVAE [Suspect]
     Active Substance: ZURANOLONE
     Indication: Perinatal depression
     Dosage: 50 MG DAILY ORAL ?
     Route: 048

REACTIONS (4)
  - Amnesia [None]
  - Fatigue [None]
  - Somnolence [None]
  - Hypersomnia [None]

NARRATIVE: CASE EVENT DATE: 20251118
